FAERS Safety Report 7893832-9 (Version None)
Quarter: 2011Q4

REPORT INFORMATION
  Report Type: 
  Country: None (occurrence: None)
  Receive Date: 20111104
  Receipt Date: 20111026
  Transmission Date: 20120403
  Serious: Yes (Other)
  Sender: FDA-Public Use
  Company Number: BR-US-EMD SERONO, INC.-7092632

PATIENT
  Age: 29 Year
  Sex: Female

DRUGS (2)
  1. ANTIBIOTICS [Suspect]
     Indication: URINARY TRACT INFECTION
  2. SEROPHENE [Suspect]
     Indication: ASSISTED FERTILISATION
     Dates: start: 20111005, end: 20111009

REACTIONS (5)
  - ABDOMINAL DISCOMFORT [None]
  - DIZZINESS [None]
  - URINARY TRACT INFECTION [None]
  - NAUSEA [None]
  - HYPERSENSITIVITY [None]
